FAERS Safety Report 4666750-7 (Version None)
Quarter: 2005Q2

REPORT INFORMATION
  Report Type: 
  Country: None (occurrence: None)
  Receive Date: 20050519
  Receipt Date: 20040329
  Transmission Date: 20051028
  Serious: Yes (Disabling, Other)
  Sender: FDA-Public Use
  Company Number: PHEH2004US03584

PATIENT
  Age: 56 Year
  Sex: Female

DRUGS (2)
  1. AREDIA [Suspect]
     Indication: HYPERCALCAEMIA OF MALIGNANCY
     Dosage: 90 MG Q MONTH
     Route: 042
     Dates: start: 20010601, end: 20020501
  2. CHEMOTHERAPEUTICS,OTHER [Concomitant]
     Indication: BREAST CANCER METASTATIC
     Dates: start: 20010601, end: 20020301

REACTIONS (5)
  - ASEPTIC NECROSIS BONE [None]
  - BONE DEBRIDEMENT [None]
  - BONE DISORDER [None]
  - INFECTION [None]
  - PAIN [None]
